FAERS Safety Report 7392905-7 (Version None)
Quarter: 2011Q2

REPORT INFORMATION
  Report Type: 
  Country: None (occurrence: None)
  Receive Date: 20110404
  Receipt Date: 20110329
  Transmission Date: 20111010
  Serious: Yes (Other)
  Sender: FDA-Public Use
  Company Number: US-ABBOTT-11P-163-0714613-00

PATIENT
  Sex: Male
  Weight: 95.34 kg

DRUGS (4)
  1. BIAXIN [Suspect]
     Indication: INFLUENZA
     Dates: start: 20110127, end: 20110205
  2. BIAXIN [Suspect]
     Indication: SINUSITIS
  3. ASCORBIC ACID [Concomitant]
     Indication: VITAMIN SUPPLEMENTATION
  4. CENTRUM SILVER [Concomitant]
     Indication: VITAMIN SUPPLEMENTATION

REACTIONS (4)
  - MIDDLE EAR EFFUSION [None]
  - TINNITUS [None]
  - DEAFNESS [None]
  - DYSGEUSIA [None]
